FAERS Safety Report 7367556-0 (Version None)
Quarter: 2011Q1

REPORT INFORMATION
  Report Type: 
  Country: None (occurrence: None)
  Receive Date: 20110311
  Receipt Date: 20110225
  Transmission Date: 20110831
  Serious: Yes (Hospitalization)
  Sender: FDA-Public Use
  Company Number: 2011MA001860

PATIENT
  Age: 78 Year
  Sex: Female

DRUGS (1)
  1. TRIAMCINOLONE ACETONIDE [Suspect]
     Indication: MACULAR OEDEMA
     Dosage: 4 MG;IO

REACTIONS (2)
  - VITREOUS HAEMORRHAGE [None]
  - CYTOMEGALOVIRUS CHORIORETINITIS [None]
